FAERS Safety Report 6858270-6 (Version None)
Quarter: 2010Q3

REPORT INFORMATION
  Report Type: 
  Country: None (occurrence: None)
  Receive Date: 20100719
  Receipt Date: 20080204
  Transmission Date: 20110219
  Serious: No
  Sender: FDA-Public Use
  Company Number: US-PFIZER INC-2008012164

PATIENT
  Sex: Female
  Weight: 93.181 kg

DRUGS (3)
  1. CHANTIX [Suspect]
     Indication: SMOKING CESSATION THERAPY
     Route: 048
     Dates: start: 20071115
  2. CHLORTHALIDONE [Concomitant]
     Indication: RENAL FAILURE
  3. LISINOPRIL [Concomitant]
     Indication: BLOOD PRESSURE ABNORMAL

REACTIONS (2)
  - ABNORMAL DREAMS [None]
  - INSOMNIA [None]
